FAERS Safety Report 16046500 (Version 3)
Quarter: 2019Q2

REPORT INFORMATION
  Report Type: Spontaneous
  Country: US (occurrence: US)
  Receive Date: 20190307
  Receipt Date: 20190417
  Transmission Date: 20190711
  Serious: No
  Sender: FDA-Public Use
  Company Number: US-BAUSCH-BL-2019-005778

PATIENT
  Age: 68 Year
  Sex: Male
  Weight: 79.45 kg

DRUGS (3)
  1. PROLENSA [Suspect]
     Active Substance: BROMFENAC SODIUM
     Indication: PRODUCT USED FOR UNKNOWN INDICATION
     Route: 047
     Dates: start: 201805
  2. PROLENSA [Suspect]
     Active Substance: BROMFENAC SODIUM
     Dosage: NEW BOTTLE
     Route: 047
     Dates: start: 201811
  3. VYZULTA [Suspect]
     Active Substance: LATANOPROSTENE BUNOD
     Indication: INTRAOCULAR PRESSURE INCREASED
     Route: 047
     Dates: start: 201901

REACTIONS (2)
  - Ocular hyperaemia [Not Recovered/Not Resolved]
  - Product quality issue [Unknown]

NARRATIVE: CASE EVENT DATE: 201811
